FAERS Safety Report 11315811 (Version 1)
Quarter: 2015Q3

REPORT INFORMATION
  Report Type: Spontaneous
  Country: US (occurrence: None)
  Receive Date: 20150724
  Receipt Date: 20150724
  Transmission Date: 20151125
  Serious: Yes (Hospitalization)
  Sender: FDA-Public Use
  Company Number: 2015US-100780

PATIENT
  Age: 25 Year
  Sex: Male

DRUGS (1)
  1. ONDANSETRON (ONDANSETRON) TABLET [Suspect]
     Active Substance: ONDANSETRON
     Indication: NAUSEA
     Dosage: UP TO 40 TABLETS
     Route: 048

REACTIONS (7)
  - Blindness [None]
  - Intentional overdose [None]
  - Brain oedema [None]
  - Nausea [None]
  - Cerebral haemorrhage [None]
  - Posterior reversible encephalopathy syndrome [None]
  - Headache [None]
